FAERS Safety Report 24936669 (Version 1)
Quarter: 2025Q1

REPORT INFORMATION
  Report Type: Spontaneous
  Country: DE (occurrence: DE)
  Receive Date: 20250206
  Receipt Date: 20250206
  Transmission Date: 20250408
  Serious: Yes (Other)
  Sender: GILEAD
  Company Number: DE-GILEAD-2025-0701845

PATIENT
  Sex: Male

DRUGS (1)
  1. EPCLUSA [Suspect]
     Active Substance: SOFOSBUVIR\VELPATASVIR
     Indication: Hepatitis C
     Route: 065

REACTIONS (5)
  - Hepatitis C [Unknown]
  - Viral load increased [Unknown]
  - Transaminases increased [Unknown]
  - Drug ineffective [Unknown]
  - Product use issue [Unknown]
